FAERS Safety Report 22166451 (Version 7)
Quarter: 2023Q2

REPORT INFORMATION
  Report Type: Report from Study
  Country: US (occurrence: US)
  Receive Date: 20230403
  Receipt Date: 20230616
  Transmission Date: 20230721
  Serious: No
  Sender: FDA-Public Use
  Company Number: US-002147023-NVSC2023US071925

PATIENT

DRUGS (1)
  1. KESIMPTA [Suspect]
     Active Substance: OFATUMUMAB
     Indication: Relapsing multiple sclerosis
     Dosage: UNK, QW
     Route: 058

REACTIONS (10)
  - Balance disorder [Unknown]
  - Speech disorder [Unknown]
  - Gait inability [Recovering/Resolving]
  - Pain [Unknown]
  - Muscular weakness [Unknown]
  - Somnolence [Unknown]
  - Fatigue [Unknown]
  - Device malfunction [Unknown]
  - Incorrect dose administered [Unknown]
  - Product dose omission in error [Unknown]
